FAERS Safety Report 10736629 (Version 1)
Quarter: 2015Q1

REPORT INFORMATION
  Report Type: Spontaneous
  Country: US (occurrence: None)
  Receive Date: 20150122
  Receipt Date: 20150122
  Transmission Date: 20150721
  Serious: Yes (Hospitalization)
  Sender: FDA-Public Use
  Company Number: None

PATIENT
  Age: 53 Year
  Sex: Male
  Weight: 60.83 kg

DRUGS (1)
  1. TRAMADOL [Suspect]
     Active Substance: TRAMADOL
     Indication: SEIZURE
     Route: 048
     Dates: start: 20140901, end: 20141001

REACTIONS (1)
  - Seizure [None]

NARRATIVE: CASE EVENT DATE: 20140930
